FAERS Safety Report 17825507 (Version 2)
Quarter: 2020Q2

REPORT INFORMATION
  Report Type: Spontaneous
  Country: SE (occurrence: SE)
  Receive Date: 20200526
  Receipt Date: 20200605
  Transmission Date: 20200714
  Serious: Yes (Other)
  Sender: FDA-Public Use
  Company Number: NVSC2020SE138581

PATIENT
  Sex: Male

DRUGS (7)
  1. ZONEGRAN [Suspect]
     Active Substance: ZONISAMIDE
     Indication: FOETAL EXPOSURE DURING PREGNANCY
     Dosage: MATERNAL DOSE 300 MG, QD
     Route: 064
  2. LAMOTRIGINE. [Suspect]
     Active Substance: LAMOTRIGINE
     Dosage: MATERNAL DOSE: 600 MG, QD
     Route: 064
     Dates: start: 20190126, end: 20190323
  3. LEVETIRACETAM. [Suspect]
     Active Substance: LEVETIRACETAM
     Dosage: MATERNAL DOSE 750 MG + 1000 MG QD
     Route: 064
     Dates: start: 20181213, end: 20190211
  4. LAMOTRIGINE. [Suspect]
     Active Substance: LAMOTRIGINE
     Dosage: MATERNAL DOSE 800 MG, QD
     Route: 064
     Dates: start: 20190324
  5. LEVETIRACETAM. [Suspect]
     Active Substance: LEVETIRACETAM
     Indication: FOETAL EXPOSURE DURING PREGNANCY
     Dosage: MATERNAL DOSE: 1500 MG, QD
     Route: 064
     Dates: end: 20181206
  6. LAMOTRIGINE. [Suspect]
     Active Substance: LAMOTRIGINE
     Indication: FOETAL EXPOSURE DURING PREGNANCY
     Dosage: MATERNAL DOSE: 200 MG, QD
     Route: 064
     Dates: end: 20190125
  7. LEVETIRACETAM. [Suspect]
     Active Substance: LEVETIRACETAM
     Dosage: MATERNAL DOSE 2000 MG, QD
     Route: 064
     Dates: start: 20181207, end: 20181212

REACTIONS (4)
  - Foetal growth restriction [Unknown]
  - Congenital inguinal hernia [Recovered/Resolved]
  - Premature baby [Recovered/Resolved]
  - Foetal exposure during pregnancy [Unknown]

NARRATIVE: CASE EVENT DATE: 201905
